APPROVED DRUG PRODUCT: QUETIAPINE FUMARATE
Active Ingredient: QUETIAPINE FUMARATE
Strength: EQ 25MG BASE
Dosage Form/Route: TABLET;ORAL
Application: A090323 | Product #001
Applicant: PHARMOBEDIENT CONSULTING LLC
Approved: Mar 27, 2012 | RLD: No | RS: No | Type: DISCN